FAERS Safety Report 8612006-7 (Version None)
Quarter: 2012Q3

REPORT INFORMATION
  Report Type: 
  Country: None (occurrence: None)
  Receive Date: 20120822
  Receipt Date: 20110822
  Transmission Date: 20120928
  Serious: Yes (Hospitalization, Other)
  Sender: FDA-Public Use
  Company Number: NO-GLAXOSMITHKLINE-B0742968A

PATIENT
  Sex: Male

DRUGS (15)
  1. BREXIDOL [Concomitant]
  2. RINEXIN [Concomitant]
  3. LAMICTAL [Concomitant]
  4. PAROXETINE HCL [Suspect]
     Indication: SOCIAL PHOBIA
     Dosage: 1TAB PER DAY
     Route: 065
  5. COSYLAN [Concomitant]
     Route: 048
  6. BRONKYL [Concomitant]
  7. VIBRAMYCINE [Concomitant]
  8. CITALOPRAM HYDROBROMIDE [Concomitant]
  9. DOXYLIN [Concomitant]
  10. VALPROATE SODIUM [Concomitant]
  11. ZITHROMAX [Concomitant]
  12. ABILIFY [Concomitant]
  13. CITALOPRAM HYDROBROMIDE [Concomitant]
  14. LAMISIL [Concomitant]
  15. FLUOXETINE HCL [Concomitant]

REACTIONS (6)
  - AMNESIA [None]
  - SUICIDAL IDEATION [None]
  - SUICIDAL BEHAVIOUR [None]
  - ANGER [None]
  - DEPRESSION [None]
  - SELF INJURIOUS BEHAVIOUR [None]
